FAERS Safety Report 8586673-0 (Version None)
Quarter: 2012Q3

REPORT INFORMATION
  Report Type: 
  Country: None (occurrence: None)
  Receive Date: 20120810
  Receipt Date: 20120628
  Transmission Date: 20120928
  Serious: Yes (Hospitalization)
  Sender: FDA-Public Use
  Company Number: FR-009507513-1206FRA00158

PATIENT

DRUGS (11)
  1. PAROXETINE HCL [Suspect]
     Dosage: 10 MG, QD
     Route: 048
     Dates: start: 20120314, end: 20120510
  2. SIMVASTATIN [Suspect]
     Dosage: 40 MG, QD
     Route: 048
     Dates: end: 20120503
  3. MK-9378 [Suspect]
     Dosage: QD
     Route: 048
     Dates: start: 20120328, end: 20120420
  4. IRBESARTAN [Concomitant]
  5. OXAZEPAM [Concomitant]
     Dosage: UNK UNK, PRN
  6. MK-9378 [Suspect]
     Dosage: QD
     Route: 048
     Dates: start: 20120321, end: 20120327
  7. ASPEGIC 1000 [Concomitant]
  8. PLAVIX [Concomitant]
  9. MK-9378 [Suspect]
     Dosage: QD
     Route: 048
     Dates: start: 20120314, end: 20120320
  10. JANUVIA [Suspect]
     Indication: TYPE 2 DIABETES MELLITUS
     Dosage: 100 MG, QD
     Route: 048
     Dates: start: 20110101, end: 20120430
  11. LERCANIDIPINE [Concomitant]

REACTIONS (2)
  - CHOLESTATIC LIVER INJURY [None]
  - DIARRHOEA [None]
